FAERS Safety Report 8154751-6 (Version None)
Quarter: 2012Q1

REPORT INFORMATION
  Report Type: 
  Country: None (occurrence: None)
  Receive Date: 20120221
  Receipt Date: 20120208
  Transmission Date: 20120608
  Serious: Yes (Other)
  Sender: FDA-Public Use
  Company Number: PHHY2012AU012032

PATIENT
  Age: 31 Year
  Sex: Male

DRUGS (2)
  1. CLOZARIL [Suspect]
     Route: 048
  2. CLOZAPINE [Suspect]

REACTIONS (6)
  - DIASTOLIC DYSFUNCTION [None]
  - HEART RATE INCREASED [None]
  - TROPONIN INCREASED [None]
  - BODY TEMPERATURE INCREASED [None]
  - RESPIRATORY RATE INCREASED [None]
  - BUNDLE BRANCH BLOCK RIGHT [None]
